FAERS Safety Report 5314050-4 (Version None)
Quarter: 2007Q2

REPORT INFORMATION
  Report Type: 
  Country: None (occurrence: None)
  Receive Date: 20070501
  Receipt Date: 20070419
  Transmission Date: 20071010
  Serious: Yes (Other)
  Sender: FDA-Public Use
  Company Number: BR-PFIZER INC-2007027340

PATIENT
  Sex: Female

DRUGS (3)
  1. FELDENE [Suspect]
     Indication: ABDOMINAL PAIN
     Route: 048
     Dates: start: 20070329, end: 20070330
  2. OMEPRAZOLE [Concomitant]
     Route: 048
  3. BUSCOPAN [Concomitant]

REACTIONS (3)
  - HYPERSENSITIVITY [None]
  - PHOTOSENSITIVITY REACTION [None]
  - THERMAL BURN [None]
